FAERS Safety Report 18188881 (Version 1)
Quarter: 2020Q3

REPORT INFORMATION
  Report Type: Spontaneous
  Country: FR (occurrence: FR)
  Receive Date: 20200824
  Receipt Date: 20200824
  Transmission Date: 20201103
  Serious: Yes (Other)
  Sender: FDA-Public Use
  Company Number: NVSC2020FR230237

PATIENT
  Age: 19 Year
  Sex: Male
  Weight: 84.5 kg

DRUGS (1)
  1. AMOXICILLIN. [Suspect]
     Active Substance: AMOXICILLIN
     Indication: MENINGITIS MENINGOCOCCAL
     Dosage: 3 G, QD
     Route: 048
     Dates: start: 20191231, end: 20200103

REACTIONS (1)
  - Rash maculo-papular [Recovered/Resolved]

NARRATIVE: CASE EVENT DATE: 20200103
